FAERS Safety Report 7312815-0 (Version None)
Quarter: 2011Q1

REPORT INFORMATION
  Report Type: 
  Country: None (occurrence: None)
  Receive Date: 20110224
  Receipt Date: 20100210
  Transmission Date: 20110831
  Serious: No
  Sender: FDA-Public Use
  Company Number: US-MYLANLABS-2010S1002374

PATIENT
  Sex: Female

DRUGS (1)
  1. METOPROLOL TARTRATE [Suspect]
     Indication: BLOOD PRESSURE INCREASED
     Route: 048
     Dates: start: 20100104

REACTIONS (5)
  - BALANCE DISORDER [None]
  - SOMNOLENCE [None]
  - MYALGIA [None]
  - DISTURBANCE IN ATTENTION [None]
  - REACTION TO DRUG EXCIPIENTS [None]
